FAERS Safety Report 4822305-2 (Version None)
Quarter: 2005Q4

REPORT INFORMATION
  Report Type: 
  Country: None (occurrence: None)
  Receive Date: 20051103
  Receipt Date: 20051014
  Transmission Date: 20060501
  Serious: Yes (Hospitalization)
  Sender: FDA-Public Use
  Company Number: USA0507102236

PATIENT
  Age: 72 Year
  Sex: Female
  Weight: 75 kg

DRUGS (6)
  1. EVISTA [Suspect]
     Dosage: 60 MG DAY
  2. CALCIUM CARBONATE W/VITAMIN D NOS [Concomitant]
  3. ACETYLSALICYLIC ACID SRT [Concomitant]
  4. ZOCOR [Concomitant]
  5. PRILOSEC [Concomitant]
  6. GLUCOPHAGE XR (METFORMIN HYDROCHLORIDE) [Concomitant]

REACTIONS (3)
  - CORONARY ARTERY DISEASE [None]
  - DIABETES MELLITUS [None]
  - POST PROCEDURAL COMPLICATION [None]
